FAERS Safety Report 5573550-2 (Version None)
Quarter: 2007Q4

REPORT INFORMATION
  Report Type: 
  Country: None (occurrence: None)
  Receive Date: 20071220
  Receipt Date: 20071220
  Transmission Date: 20080405
  Serious: Yes (Other)
  Sender: FDA-Public Use
  Company Number: None

PATIENT
  Sex: Male
  Weight: 136.0791 kg

DRUGS (1)
  1. REQUIP [Suspect]
     Indication: RESTLESS LEGS SYNDROME
     Dosage: 1 TABLET DAILY PO
     Route: 048
     Dates: start: 20071112, end: 20071215

REACTIONS (6)
  - ABNORMAL BEHAVIOUR [None]
  - ALCOHOL INTERACTION [None]
  - ANTISOCIAL BEHAVIOUR [None]
  - LOSS OF CONSCIOUSNESS [None]
  - PHARMACEUTICAL PRODUCT COMPLAINT [None]
  - SEXUAL ABUSE [None]
